FAERS Safety Report 21346304 (Version 1)
Quarter: 2022Q3

REPORT INFORMATION
  Report Type: Spontaneous
  Country: GB (occurrence: GB)
  Receive Date: 20220917
  Receipt Date: 20220917
  Transmission Date: 20221027
  Serious: Yes (Other)
  Sender: FDA-Public Use
  Company Number: GB-AUROBINDO-AUR-APL-2022-036544

PATIENT
  Age: 35 Year
  Sex: Female
  Weight: 85 kg

DRUGS (1)
  1. FLUOXETINE [Suspect]
     Active Substance: FLUOXETINE HYDROCHLORIDE
     Indication: Depressed mood
     Dosage: 40 MILLIGRAM, ONCE A DAY
     Route: 065
     Dates: start: 20201001, end: 20220801

REACTIONS (1)
  - Galactorrhoea [Recovering/Resolving]

NARRATIVE: CASE EVENT DATE: 20220629
